FAERS Safety Report 13926979 (Version 1)
Quarter: 2017Q3

REPORT INFORMATION
  Report Type: Spontaneous
  Country: US (occurrence: US)
  Receive Date: 20170831
  Receipt Date: 20170831
  Transmission Date: 20171127
  Serious: No
  Sender: FDA-Public Use
  Company Number: US-FERRINGPH-2017FE01098

PATIENT
  Age: 46 Year
  Sex: Female
  Weight: 68.93 kg

DRUGS (6)
  1. EPSOM SALT [Concomitant]
     Active Substance: MAGNESIUM SULFATE
     Indication: BOWEL PREPARATION
     Dosage: UNK, ONCE/SINGLE
     Route: 065
     Dates: start: 20170301, end: 20170301
  2. CORTEF [Concomitant]
     Active Substance: HYDROCORTISONE
     Route: 065
  3. LEVOXYL [Concomitant]
     Active Substance: LEVOTHYROXINE SODIUM
     Route: 065
  4. IMITREX [Concomitant]
     Active Substance: SUMATRIPTAN SUCCINATE
     Route: 065
  5. PREPOPIK [Suspect]
     Active Substance: ANHYDROUS CITRIC ACID\MAGNESIUM OXIDE\SODIUM PICOSULFATE
     Indication: BOWEL PREPARATION
     Dosage: UNK
     Route: 048
     Dates: start: 20170302, end: 20170303
  6. ZOFRAN [Concomitant]
     Active Substance: ONDANSETRON HYDROCHLORIDE
     Route: 065

REACTIONS (3)
  - Underdose [Unknown]
  - Drug ineffective [Unknown]
  - Diarrhoea [Recovered/Resolved]

NARRATIVE: CASE EVENT DATE: 20170302
